FAERS Safety Report 10232439 (Version 3)
Quarter: 2014Q3

REPORT INFORMATION
  Report Type: Report from Study
  Country: NL (occurrence: NL)
  Receive Date: 20140612
  Receipt Date: 20140721
  Transmission Date: 20150326
  Serious: Yes (Hospitalization)
  Sender: FDA-Public Use
  Company Number: PHHY2014NL066001

PATIENT
  Sex: Female

DRUGS (1)
  1. LDK378 [Suspect]
     Active Substance: CERITINIB
     Indication: ADENOCARCINOMA
     Dosage: UNK UKN, UNK
     Route: 048

REACTIONS (3)
  - Chest pain [Unknown]
  - Arthralgia [Recovered/Resolved]
  - Pneumonitis [Unknown]
